FAERS Safety Report 26154470 (Version 1)
Quarter: 2025Q4

REPORT INFORMATION
  Report Type: Spontaneous
  Country: US (occurrence: US)
  Receive Date: 20251215
  Receipt Date: 20251215
  Transmission Date: 20260117
  Serious: Yes (Other)
  Sender: SPECGX
  Company Number: US-SPECGX-T202501970

PATIENT
  Age: 30 Year
  Sex: Female

DRUGS (2)
  1. DEXTROAMPHETAMINE SACCHARATE, AMPHETAMINE ASPARTATE, DEXTROAMPHETAMINE [Suspect]
     Active Substance: AMPHETAMINE ASPARTATE\AMPHETAMINE SULFATE\DEXTROAMPHETAMINE SACCHARATE\DEXTROAMPHETAMINE SULFATE
     Indication: Product used for unknown indication
     Dosage: UNK
     Route: 065
  2. FENTANYL [Suspect]
     Active Substance: FENTANYL
     Indication: Product used for unknown indication
     Dosage: UNK
     Route: 065

REACTIONS (13)
  - Cellulitis staphylococcal [Recovering/Resolving]
  - Skin ulcer [Unknown]
  - Soft tissue necrosis [Recovering/Resolving]
  - Abscess limb [Unknown]
  - Incisional drainage [Unknown]
  - Plastic surgery [Unknown]
  - Substance use [Unknown]
  - Feeling jittery [Unknown]
  - Haemoglobin decreased [Unknown]
  - Hyperhidrosis [Unknown]
  - Anxiety [Unknown]
  - Pain [Unknown]
  - Tremor [Unknown]
